FAERS Safety Report 4952610-0 (Version None)
Quarter: 2006Q1

REPORT INFORMATION
  Report Type: 
  Country: None (occurrence: None)
  Receive Date: 20060317
  Receipt Date: 20060308
  Transmission Date: 20060701
  Serious: Yes (Other)
  Sender: FDA-Public Use
  Company Number: HQWYE774503AUG04

PATIENT
  Age: 60 Year
  Sex: Female
  Weight: 77.18 kg

DRUGS (8)
  1. PREMPRO [Suspect]
     Indication: HOT FLUSH
     Dates: start: 19950101, end: 20010101
  2. PREMPRO [Suspect]
     Indication: OSTEOPOROSIS
     Dates: start: 19950101, end: 20010101
  3. PREMPRO [Suspect]
     Indication: PROPHYLAXIS
     Dates: start: 19950101, end: 20010101
  4. PREMARIN [Suspect]
     Dosage: SEE IMAGE
     Dates: start: 19910101, end: 19950101
  5. PREMARIN [Suspect]
     Dosage: SEE IMAGE
     Dates: start: 19990101
  6. PREMARIN [Suspect]
     Dosage: SEE IMAGE
     Dates: start: 20000101
  7. PROVERA [Suspect]
     Dates: start: 19910101, end: 19950101
  8. VERAPAMIL [Concomitant]

REACTIONS (11)
  - ANXIETY [None]
  - BREAST CANCER METASTATIC [None]
  - COLLAPSE OF LUNG [None]
  - DEPRESSION [None]
  - FAT NECROSIS [None]
  - FIBROSIS [None]
  - INFECTION [None]
  - METASTASES TO LYMPH NODES [None]
  - OESTROGEN RECEPTOR ASSAY POSITIVE [None]
  - PROGESTERONE RECEPTOR ASSAY POSITIVE [None]
  - WOUND DEHISCENCE [None]
